FAERS Safety Report 13481191 (Version 1)
Quarter: 2017Q2

REPORT INFORMATION
  Report Type: Spontaneous
  Country: US (occurrence: US)
  Receive Date: 20170425
  Receipt Date: 20170425
  Transmission Date: 20170830
  Serious: No
  Sender: FDA-Public Use
  Company Number: US-AMGEN-USASP2017060574

PATIENT
  Sex: Male

DRUGS (11)
  1. METFORMIN [Concomitant]
     Active Substance: METFORMIN HYDROCHLORIDE
  2. OMEPRAZOLE. [Concomitant]
     Active Substance: OMEPRAZOLE
  3. TAMULOSIN [Concomitant]
     Active Substance: TAMSULOSIN
  4. METOPROLOL. [Concomitant]
     Active Substance: METOPROLOL
  5. ADVIL [Concomitant]
     Active Substance: IBUPROFEN
  6. PRAVASTATIN. [Concomitant]
     Active Substance: PRAVASTATIN
  7. PROAIR HFA [Concomitant]
     Active Substance: ALBUTEROL SULFATE
  8. ENBREL [Suspect]
     Active Substance: ETANERCEPT
     Indication: PSORIATIC ARTHROPATHY
     Dosage: 50 MG, QWK
     Route: 058
     Dates: start: 201610, end: 201703
  9. OLMESARTAN [Concomitant]
     Active Substance: OLMESARTAN
  10. BRILINTA [Concomitant]
     Active Substance: TICAGRELOR
  11. AXIRON [Concomitant]
     Active Substance: TESTOSTERONE

REACTIONS (1)
  - Drug ineffective [Unknown]

NARRATIVE: CASE EVENT DATE: 2016
